FAERS Safety Report 17633954 (Version 1)
Quarter: 2020Q2

REPORT INFORMATION
  Report Type: Spontaneous
  Country: US (occurrence: US)
  Receive Date: 20200406
  Receipt Date: 20200406
  Transmission Date: 20200713
  Serious: No
  Sender: FDA-Public Use
  Company Number: US-GALDERMA-US2020001671

PATIENT
  Sex: Female

DRUGS (3)
  1. NEUTROGENA [Concomitant]
     Active Substance: COSMETICS
     Dosage: NEUTROGENA MOISTURIZER
     Route: 065
  2. NEUTROGENA [Concomitant]
     Active Substance: COSMETICS
     Indication: PRODUCT USED FOR UNKNOWN INDICATION
     Dosage: NEUTROGENA CLEANSER
     Route: 065
  3. DIFFERIN GEL [Suspect]
     Active Substance: ADAPALENE
     Indication: ACNE
     Dosage: 1%
     Route: 061
     Dates: start: 20200105, end: 20200107

REACTIONS (2)
  - Rash [Recovered/Resolved]
  - Erythema [Recovered/Resolved]

NARRATIVE: CASE EVENT DATE: 20200105
